FAERS Safety Report 10698229 (Version 1)
Quarter: 2014Q4

REPORT INFORMATION
  Report Type: Spontaneous
  Country: US (occurrence: None)
  Receive Date: 20141223
  Receipt Date: 20141223
  Transmission Date: 20150529
  Serious: No
  Sender: FDA-Public Use
  Company Number: 1000072077

PATIENT
  Age: 78 Year
  Sex: Female

DRUGS (3)
  1. LINZESS [Suspect]
     Active Substance: LINACLOTIDE
     Indication: CONSTIPATION
     Route: 048
     Dates: start: 20141030, end: 20141030
  2. LINZESS [Suspect]
     Active Substance: LINACLOTIDE
     Indication: CONSTIPATION
     Route: 048
     Dates: start: 20141027, end: 20141027
  3. BLOOD PRESSURE MEDICATION (NOS) (BLODD PRESSURE MEDIATION (NOS)) (BLOOD PRESSURE MEDICATIONS (NOS) [Concomitant]

REACTIONS (3)
  - Decreased appetite [None]
  - Diarrhoea [None]
  - Abdominal discomfort [None]

NARRATIVE: CASE EVENT DATE: 20141027
